FAERS Safety Report 10208947 (Version 1)
Quarter: 2014Q2

REPORT INFORMATION
  Report Type: Spontaneous
  Country: GR (occurrence: GR)
  Receive Date: 20140530
  Receipt Date: 20140530
  Transmission Date: 20141212
  Serious: Yes (Other)
  Sender: FDA-Public Use
  Company Number: GR-ELI_LILLY_AND_COMPANY-GR201405006517

PATIENT
  Sex: 0

DRUGS (4)
  1. LADOSE [Suspect]
     Indication: DEPRESSION
     Dosage: 50 MG, UNK
     Route: 064
     Dates: start: 201306
  2. CALCIUM [Concomitant]
     Indication: PREGNANCY
     Route: 064
  3. MAGNESIUM [Concomitant]
     Indication: PREGNANCY
     Route: 064
  4. IRON [Concomitant]
     Indication: PREGNANCY
     Route: 064

REACTIONS (3)
  - Premature baby [Unknown]
  - Polyhydramnios [Recovered/Resolved]
  - Foetal exposure during pregnancy [Unknown]
